FAERS Safety Report 5603329-4 (Version None)
Quarter: 2008Q1

REPORT INFORMATION
  Report Type: 
  Country: None (occurrence: None)
  Receive Date: 20080122
  Receipt Date: 20080109
  Transmission Date: 20080703
  Serious: Yes (Other)
  Sender: FDA-Public Use
  Company Number: 2008AL000210

PATIENT
  Age: 44 Year
  Sex: Female

DRUGS (6)
  1. SERTRALINE HYDROCHLORIDE [Suspect]
     Dosage: 150 MG; QD; PO
     Route: 048
     Dates: start: 20071119
  2. VENLAFAXINE HCL [Concomitant]
  3. NITRAZEPAM [Concomitant]
  4. ZOPICLONE [Concomitant]
  5. LORAZEPAM [Concomitant]
  6. DIAZEPAM [Concomitant]

REACTIONS (5)
  - ATAXIA [None]
  - COGNITIVE DISORDER [None]
  - COORDINATION ABNORMAL [None]
  - GAIT DISTURBANCE [None]
  - TREMOR [None]
